FAERS Safety Report 24237780 (Version 2)
Quarter: 2024Q3

REPORT INFORMATION
  Report Type: Spontaneous
  Country: DE (occurrence: DE)
  Receive Date: 20240822
  Receipt Date: 20240919
  Transmission Date: 20241016
  Serious: Yes (Hospitalization, Other)
  Sender: PFIZER
  Company Number: DE-PFIZER INC-202400239884

PATIENT
  Age: 62 Year
  Sex: Male
  Weight: 95.4 kg

DRUGS (16)
  1. PAXLOVID [Interacting]
     Active Substance: NIRMATRELVIR\RITONAVIR
     Indication: COVID-19 treatment
     Dosage: ACCORDING TO OFFICIAL RECOMMENDATION
     Route: 048
     Dates: start: 20220520, end: 20220522
  2. CERTICAN [Interacting]
     Active Substance: EVEROLIMUS
     Dosage: 0.5 MG-0-0.75 MG-0
     Route: 048
  3. CERTICAN [Interacting]
     Active Substance: EVEROLIMUS
     Dosage: TOTAL DOSE OF 5 MG
     Route: 048
     Dates: start: 20220530
  4. CERTICAN [Interacting]
     Active Substance: EVEROLIMUS
     Dosage: THE USUAL DOSE
     Route: 048
     Dates: start: 20220602
  5. PROGRAF [Interacting]
     Active Substance: TACROLIMUS
     Dosage: 0.5 MG, 2X/DAY IN THE MORNING AND EVENING
     Route: 048
  6. ASPIRIN [Concomitant]
     Active Substance: ASPIRIN
     Dosage: 1-0-0-0
     Route: 048
  7. PREDNISOLONE [Concomitant]
     Active Substance: PREDNISOLONE
     Dosage: 2 MG, 1X/DAY
     Route: 048
  8. METFORMIN HYDROCHLORIDE [Concomitant]
     Active Substance: METFORMIN HYDROCHLORIDE
     Dosage: 1000 MG, 2X/DAY
     Route: 048
  9. DAPAGLIFLOZIN [Concomitant]
     Active Substance: DAPAGLIFLOZIN
     Dosage: 10 MG, 1X/DAY
     Route: 048
  10. CHOLECALCIFEROL [Concomitant]
     Active Substance: CHOLECALCIFEROL
     Dosage: 20000 IU, WEEKLY
     Route: 048
  11. TORSEMIDE [Concomitant]
     Active Substance: TORSEMIDE
     Dosage: 10 MG, 1X/DAY, 1-0-0-0
     Route: 048
  12. CARVEDILOL [Concomitant]
     Active Substance: CARVEDILOL
     Dosage: 25 MG, 2X/DAY, 1-0-1-0
     Route: 048
  13. CANDESARTAN CILEXETIL [Concomitant]
     Active Substance: CANDESARTAN CILEXETIL
     Dosage: 8 MG, 2X/DAY, 1-0-1-0
     Route: 048
  14. OMACOR [Concomitant]
     Active Substance: OMEGA-3-ACID ETHYL ESTERS
     Dosage: 1 G, 1X/DAY, 0-1-0-0
  15. EZETIMIBE [Concomitant]
     Active Substance: EZETIMIBE
     Dosage: 10 MG, 1X/DAY, 1-0-0-0
  16. ALLOPURINOL [Concomitant]
     Active Substance: ALLOPURINOL
     Dosage: 150 MG, 1X/DAY, 0.5-0-0-0
     Route: 048

REACTIONS (4)
  - Drug interaction [Recovered/Resolved]
  - Drug level increased [Recovered/Resolved]
  - Acute kidney injury [Recovered/Resolved]
  - Antibody test abnormal [Recovered/Resolved]

NARRATIVE: CASE EVENT DATE: 20220523
